FAERS Safety Report 5163046-4 (Version None)
Quarter: 2006Q4

REPORT INFORMATION
  Report Type: 
  Country: None (occurrence: None)
  Receive Date: 20061201
  Receipt Date: 20001222
  Transmission Date: 20070319
  Serious: Yes (Hospitalization)
  Sender: FDA-Public Use
  Company Number: FR-BOEHRINGER INGELHEIM PHARMACEUTICALS, INC.-2000-FF-S0764

PATIENT
  Sex: Male
  Weight: 7 kg

DRUGS (5)
  1. VIRAMUNE [Suspect]
     Indication: PROPHYLAXIS AGAINST HIV INFECTION
     Dosage: 4 MG/KG/DAY
     Route: 048
     Dates: start: 20000102, end: 20000102
  2. RETROVIR [Concomitant]
     Indication: PROPHYLAXIS AGAINST HIV INFECTION
     Route: 048
     Dates: start: 20000118, end: 20000127
  3. CRIXIVAN [Concomitant]
     Indication: PROPHYLAXIS AGAINST HIV INFECTION
     Route: 064
     Dates: end: 20000101
  4. COMBIVIR [Concomitant]
     Indication: PROPHYLAXIS AGAINST HIV INFECTION
     Route: 064
     Dates: end: 20000101
  5. RETROVIR [Concomitant]
     Route: 064
     Dates: start: 20000101, end: 20000118

REACTIONS (8)
  - ANAEMIA NEONATAL [None]
  - CAESAREAN SECTION [None]
  - DRUG EXPOSURE DURING PREGNANCY [None]
  - GASTROOESOPHAGEAL REFLUX DISEASE [None]
  - HYDROCEPHALUS [None]
  - NECROTISING ENTEROCOLITIS NEONATAL [None]
  - PREMATURE BABY [None]
  - STRABISMUS [None]
